FAERS Safety Report 6852111-9 (Version None)
Quarter: 2010Q3

REPORT INFORMATION
  Report Type: 
  Country: None (occurrence: None)
  Receive Date: 20100717
  Receipt Date: 20071106
  Transmission Date: 20110219
  Serious: No
  Sender: FDA-Public Use
  Company Number: US-PFIZER INC-2007094890

PATIENT
  Sex: Female
  Weight: 69.1 kg

DRUGS (12)
  1. CHANTIX [Suspect]
     Indication: SMOKING CESSATION THERAPY
     Dates: start: 20071020, end: 20071103
  2. BETASERON [Concomitant]
  3. NEURONTIN [Concomitant]
  4. NAPROSYN [Concomitant]
  5. DETROL [Concomitant]
  6. PROVIGIL [Concomitant]
  7. CYMBALTA [Concomitant]
  8. ACIPHEX [Concomitant]
  9. ZYRTEC [Concomitant]
  10. LIPITOR [Concomitant]
  11. ACYCLOVIR [Concomitant]
  12. TIZANIDINE HCL [Concomitant]

REACTIONS (5)
  - ASTHENIA [None]
  - HEADACHE [None]
  - MUSCLE SPASMS [None]
  - NAUSEA [None]
  - PAIN IN EXTREMITY [None]
